FAERS Safety Report 23270514 (Version 1)
Quarter: 2023Q4

REPORT INFORMATION
  Report Type: Spontaneous
  Country: US (occurrence: US)
  Receive Date: 20231207
  Receipt Date: 20231207
  Transmission Date: 20240110
  Serious: Yes (Other)
  Sender: FDA-Public Use
  Company Number: US-ALCON LABORATORIES-ALC2023US005454

PATIENT
  Age: 79 Year
  Sex: Female
  Weight: 91.1 kg

DRUGS (7)
  1. BETADINE [Suspect]
     Active Substance: POVIDONE-IODINE
     Indication: Product used for unknown indication
     Dosage: UNK
     Route: 047
  2. CLEOCIN [Concomitant]
     Active Substance: CLINDAMYCIN PHOSPHATE
     Indication: Product used for unknown indication
     Dosage: 1 CAPSULE (300 MG TOTAL) BY MOUTH, TID 3 (THREE) TIMES PER DAY.
     Route: 048
  3. IBRANCE [Concomitant]
     Active Substance: PALBOCICLIB
     Dosage: 1 CAPSULE (125 MG) DAILY BY MOUTH FOR 21 DAYS, THEN TAKE 7 DAYS OFF. REPEAT CYCLE EVERY 28 DAYS, DIS
     Route: 048
  4. IBRANCE [Concomitant]
     Active Substance: PALBOCICLIB
     Dosage: 1 CAPSULE (125 MG) DAILY BY MOUTH FOR 21 DAYS, THEN TAKE 7 DAYS OFF. REPEAT CYCLE EVERY 28 DAYS.
     Route: 048
  5. IBRANCE [Concomitant]
     Active Substance: PALBOCICLIB
     Indication: Product used for unknown indication
     Dosage: 1 CAPSULE (125 MG) PO FOR 21 DAYS, THEN TAKE 7 DAYS OFF. REPEAT CYCLE Q 28 DAYS. INDICATE NUMBER OF
     Route: 048
  6. IBRANCE [Concomitant]
     Active Substance: PALBOCICLIB
     Dosage: 125 MG BY MOUTH 1 (ONE) TIME EACH DAY FOR 21 DAYS, THEN TAKE 7 DAYS OFF. REPEAT CYCLE EVERY 28 DAYS,
     Route: 048
  7. NEURONTIN [Concomitant]
     Active Substance: GABAPENTIN
     Indication: Product used for unknown indication
     Dosage: 2 CAPSULES (600 MG TOTAL) BY MOUTH 3 (THREE) TIMES PER DAY.  PATIENT TAKING DIFFERENTLY: TAKE 2 CAPS
     Route: 048

REACTIONS (1)
  - Anaphylactic reaction [Unknown]
